FAERS Safety Report 5766757-2 (Version None)
Quarter: 2008Q2

REPORT INFORMATION
  Report Type: 
  Country: None (occurrence: None)
  Receive Date: 20080610
  Receipt Date: 20080610
  Transmission Date: 20081010
  Serious: Yes (Other)
  Sender: FDA-Public Use
  Company Number: None

PATIENT
  Age: 40 Year
  Sex: Female
  Weight: 54.4316 kg

DRUGS (1)
  1. EFFEXOR XR [Suspect]
     Indication: MENOPAUSE
     Dosage: 03 DAILY PO/9 DAYS DETOX
     Route: 048
     Dates: start: 20001011, end: 20080609

REACTIONS (13)
  - BURNING SENSATION [None]
  - COLD SWEAT [None]
  - CRYING [None]
  - FEAR [None]
  - HALLUCINATION, AUDITORY [None]
  - HEADACHE [None]
  - ILL-DEFINED DISORDER [None]
  - INSOMNIA [None]
  - NIGHTMARE [None]
  - PAIN [None]
  - THINKING ABNORMAL [None]
  - VISION BLURRED [None]
  - VOMITING [None]
